FAERS Safety Report 7114466-X (Version None)
Quarter: 2010Q4

REPORT INFORMATION
  Report Type: 
  Country: None (occurrence: None)
  Receive Date: 20101119
  Receipt Date: 20101111
  Transmission Date: 20110411
  Serious: Yes (Hospitalization, Other)
  Sender: FDA-Public Use
  Company Number: CH-PFIZER INC-CH-WYE-G06319210

PATIENT
  Age: 21 Year
  Sex: Female
  Weight: 57 kg

DRUGS (18)
  1. ZOLOFT [Suspect]
     Dosage: 50 MG, 1X/DAY
     Route: 048
     Dates: start: 20091219, end: 20091220
  2. EFFEXOR [Suspect]
     Dosage: 37.5 MG, 1X/DAY
     Route: 048
     Dates: start: 20091120, end: 20091122
  3. EFFEXOR [Suspect]
     Dosage: 75 MG, 1X/DAY
     Route: 048
     Dates: start: 20091123, end: 20091203
  4. EFFEXOR [Suspect]
     Dosage: 150 MG, 1X/DAY
     Route: 048
     Dates: start: 20091204, end: 20091208
  5. REMERON [Suspect]
     Dosage: 15 MG, 1X/DAY
     Route: 048
     Dates: start: 20091118, end: 20091122
  6. REMERON [Suspect]
     Dosage: 7.5 MG, 1X/DAY
     Route: 048
     Dates: start: 20091123, end: 20091123
  7. REMERON [Suspect]
     Dosage: 15 MG, 1X/DAY
     Route: 048
     Dates: start: 20091124, end: 20091207
  8. REMERON [Suspect]
     Dosage: 15 MG, 1X/DAY
     Route: 048
     Dates: start: 20091219, end: 20091220
  9. CYMBALTA [Suspect]
     Dosage: UNK
     Dates: start: 20091209, end: 20091214
  10. SEROQUEL [Suspect]
     Dosage: UNK
     Dates: start: 20091208, end: 20091216
  11. TEMESTA [Concomitant]
     Dosage: 4 MG, 1X/DAY
     Route: 048
     Dates: start: 20091219, end: 20091220
  12. TEMESTA [Concomitant]
     Dosage: 3 MG, 1X/DAY
     Route: 048
     Dates: start: 20091221, end: 20091227
  13. TEMESTA [Concomitant]
     Dosage: 2.5 MG, 1X/DAY
     Route: 048
     Dates: start: 20091228, end: 20100103
  14. TEMESTA [Concomitant]
     Dosage: 2 MG, 1X/DAY
     Route: 048
     Dates: start: 20100104, end: 20100105
  15. TEMESTA [Concomitant]
     Dosage: 1.5 MG, 1X/DAY
     Route: 048
     Dates: start: 20100106, end: 20100107
  16. TEMESTA [Concomitant]
     Dosage: 1 MG, 1X/DAY
     Route: 048
     Dates: start: 20100108, end: 20100109
  17. TEMESTA [Concomitant]
     Dosage: .5 MG, 1X/DAY
     Route: 048
  18. OLFEN [Concomitant]
     Dosage: 2 DOSE X 1 PER DAY
     Dates: start: 20090101

REACTIONS (19)
  - CACHEXIA [None]
  - CONDITION AGGRAVATED [None]
  - DIARRHOEA [None]
  - DIZZINESS POSTURAL [None]
  - DRUG INTOLERANCE [None]
  - DRUG WITHDRAWAL SYNDROME [None]
  - DYSPNOEA AT REST [None]
  - ELECTROCARDIOGRAM REPOLARISATION ABNORMALITY [None]
  - GENERAL PHYSICAL HEALTH DETERIORATION [None]
  - HYPERHIDROSIS [None]
  - HYPERSENSITIVITY [None]
  - HYPOPHAGIA [None]
  - MALAISE [None]
  - NAUSEA [None]
  - PALPITATIONS [None]
  - RASH PRURITIC [None]
  - RESTLESSNESS [None]
  - SINUS TACHYCARDIA [None]
  - WEIGHT DECREASED [None]
